FAERS Safety Report 14496607 (Version 3)
Quarter: 2018Q1

REPORT INFORMATION
  Report Type: Spontaneous
  Country: PL (occurrence: PL)
  Receive Date: 20180207
  Receipt Date: 20180226
  Transmission Date: 20180509
  Serious: Yes (Hospitalization, Other)
  Sender: FDA-Public Use
  Company Number: PL-AUROBINDO-AUR-APL-2018-001211

PATIENT
  Age: 81 Year
  Sex: Female

DRUGS (29)
  1. CARVEDILOL. [Suspect]
     Active Substance: CARVEDILOL
     Dosage: 18.75 MG, DAILY
     Route: 065
  2. CALCIUM [Concomitant]
     Active Substance: CALCIUM
     Indication: PRODUCT USED FOR UNKNOWN INDICATION
     Dosage: UNK
     Route: 065
  3. CALCIUM [Concomitant]
     Active Substance: CALCIUM
     Dosage: ()
     Route: 065
  4. CALCIUM [Concomitant]
     Active Substance: CALCIUM
     Dosage: ()
     Route: 065
  5. CIPROFLOXACIN. [Suspect]
     Active Substance: CIPROFLOXACIN
     Dosage: 200 MG, 2X PER DAY
     Route: 042
  6. ENCORTON                           /00044701/ [Suspect]
     Active Substance: PREDNISONE
     Dosage: 10 MG, PER DAY
     Route: 065
  7. CARVEDILOL. [Suspect]
     Active Substance: CARVEDILOL
     Dosage: 18.75 MG, PER DAY
  8. CARVEDILOL. [Suspect]
     Active Substance: CARVEDILOL
     Dosage: 12.5 MG, PER DAY
  9. PANTOPRAZOLE [Suspect]
     Active Substance: PANTOPRAZOLE
     Indication: PRODUCT USED FOR UNKNOWN INDICATION
     Dosage: 20 MG, PER DAY
  10. RIVAROXABAN [Suspect]
     Active Substance: RIVAROXABAN
     Indication: PRODUCT USED FOR UNKNOWN INDICATION
     Dosage: 15 MG, DAILY
     Route: 065
  11. ENCORTON                           /00044701/ [Suspect]
     Active Substance: PREDNISONE
     Dosage: 20 MG, PER DAY
     Route: 065
  12. AMIODARONE [Suspect]
     Active Substance: AMIODARONE
     Dosage: 200 MG, PER DAY (5 DAY A WEEK)
     Dates: start: 201303, end: 2016
  13. CALCIUM [Concomitant]
     Active Substance: CALCIUM
     Dosage: UNK ()
  14. FUROSEMIDE. [Suspect]
     Active Substance: FUROSEMIDE
     Indication: PRODUCT USED FOR UNKNOWN INDICATION
     Dosage: 40 MG, DAILY
     Route: 065
  15. LEVOTHYROXINE. [Suspect]
     Active Substance: LEVOTHYROXINE
     Dosage: 25 ?G, PER DAY
  16. RIVAROXABAN [Suspect]
     Active Substance: RIVAROXABAN
     Dosage: 15 MILLIGRAM
     Route: 065
  17. ENCORTON                           /00044701/ [Suspect]
     Active Substance: PREDNISONE
     Indication: PRODUCT USED FOR UNKNOWN INDICATION
     Dosage: 30 MG, PER DAY
     Route: 065
  18. AMIODARONE [Suspect]
     Active Substance: AMIODARONE
     Indication: PRODUCT USED FOR UNKNOWN INDICATION
     Dosage: 200 MG, PER DAY (5 DAY A WEEK)
     Route: 065
     Dates: start: 20130301, end: 20160101
  19. CALCIUM [Concomitant]
     Active Substance: CALCIUM
     Dosage: ()
     Route: 065
  20. CALCIUM [Concomitant]
     Active Substance: CALCIUM
     Dosage: ()
     Route: 065
  21. VITAMIN D                          /00107901/ [Concomitant]
     Active Substance: ERGOCALCIFEROL
     Indication: PRODUCT USED FOR UNKNOWN INDICATION
     Dosage: UNK
     Route: 065
  22. CIPROFLOXACIN. [Suspect]
     Active Substance: CIPROFLOXACIN
     Indication: PRODUCT USED FOR UNKNOWN INDICATION
     Dosage: 400 MG, UNK
     Route: 042
  23. LEVOTHYROXINE. [Suspect]
     Active Substance: LEVOTHYROXINE
     Indication: PRODUCT USED FOR UNKNOWN INDICATION
     Dosage: 25 ?G, DAILY
     Route: 065
  24. CALCIUM [Concomitant]
     Active Substance: CALCIUM
     Dosage: ()
     Route: 065
  25. NADROPARIN [Suspect]
     Active Substance: NADROPARIN
     Indication: PRODUCT USED FOR UNKNOWN INDICATION
     Dosage: 0.4 ML, DAILY
     Route: 065
  26. CARVEDILOL. [Suspect]
     Active Substance: CARVEDILOL
     Indication: PRODUCT USED FOR UNKNOWN INDICATION
     Dosage: 12.5 MG, DAILY
     Route: 065
  27. CALCIUM [Concomitant]
     Active Substance: CALCIUM
     Dosage: UNK ()
  28. CIPROFLOXACIN. [Suspect]
     Active Substance: CIPROFLOXACIN
     Dosage: 800 MG, UNK
     Route: 042
  29. HEPARIN LMW [Suspect]
     Active Substance: UNSPECIFIED INGREDIENT
     Indication: PRODUCT USED FOR UNKNOWN INDICATION
     Dosage: 0.4 MILLILITER, DAILY
     Route: 065

REACTIONS (12)
  - Diarrhoea [Recovering/Resolving]
  - Fatigue [Unknown]
  - Dyspnoea [Unknown]
  - Atrial fibrillation [Unknown]
  - Palpitations [Unknown]
  - Oliguria [Unknown]
  - Cough [Unknown]
  - Exercise tolerance decreased [Unknown]
  - Ventricular arrhythmia [Unknown]
  - Oedema peripheral [Unknown]
  - Pneumonia [Unknown]
  - Pulmonary toxicity [Recovered/Resolved]
